FAERS Safety Report 15688703 (Version 2)
Quarter: 2019Q1

REPORT INFORMATION
  Report Type: Spontaneous
  Country: US (occurrence: US)
  Receive Date: 20181205
  Receipt Date: 20190309
  Transmission Date: 20190417
  Serious: Yes (Other)
  Sender: FDA-Public Use
  Company Number: PHEH2018US051338

PATIENT
  Sex: Male

DRUGS (1)
  1. TASIGNA [Suspect]
     Active Substance: NILOTINIB
     Indication: CHRONIC MYELOID LEUKAEMIA
     Dosage: 1 DF, BID
     Route: 048
     Dates: start: 201102

REACTIONS (20)
  - Lumbar radiculopathy [Unknown]
  - Emphysema [Unknown]
  - Iron deficiency anaemia [Unknown]
  - Peripheral artery stenosis [Unknown]
  - Peripheral vascular disorder [Unknown]
  - Injury [Unknown]
  - Asthma [Unknown]
  - Gastrooesophageal reflux disease [Unknown]
  - Crohn^s disease [Unknown]
  - Intervertebral disc protrusion [Unknown]
  - Pain [Unknown]
  - Arteriosclerosis [Unknown]
  - Intermittent claudication [Unknown]
  - Peripheral artery occlusion [Unknown]
  - Spinal osteoarthritis [Unknown]
  - Skin ulcer [Unknown]
  - Constipation [Unknown]
  - Abdominal pain [Unknown]
  - Neuropathy peripheral [Unknown]
  - Back pain [Unknown]
